FAERS Safety Report 9168199 (Version 3)
Quarter: 2014Q1

REPORT INFORMATION
  Report Type: Spontaneous
  Country: US (occurrence: US)
  Receive Date: 20130318
  Receipt Date: 20140205
  Transmission Date: 20141002
  Serious: Yes (Hospitalization, Other)
  Sender: FDA-Public Use
  Company Number: US-009507513-1303USA007555

PATIENT
  Sex: Female
  Weight: 69.84 kg

DRUGS (4)
  1. FOSAMAX [Suspect]
     Indication: OSTEOPOROSIS
     Dosage: UNK
     Route: 048
     Dates: start: 2001, end: 2010
  2. FOSAMAX [Suspect]
     Indication: OSTEOPENIA
  3. ONE-A-DAY ESSENTIAL VITAMINS [Concomitant]
     Dosage: ONE, QD
     Dates: start: 1998
  4. ACTONEL [Concomitant]
     Indication: OSTEOPOROSIS
     Dosage: 35 MG, QW
     Dates: start: 2004, end: 2010

REACTIONS (29)
  - Hip fracture [Recovered/Resolved]
  - Intramedullary rod insertion [Unknown]
  - Humerus fracture [Unknown]
  - Hip arthroplasty [Unknown]
  - Osteonecrosis [Unknown]
  - Low turnover osteopathy [Unknown]
  - Diabetes mellitus [Unknown]
  - Vertebroplasty [Unknown]
  - Rotator cuff syndrome [Unknown]
  - Bursitis [Unknown]
  - Arthritis [Unknown]
  - Arthritis [Unknown]
  - Intervertebral disc degeneration [Unknown]
  - Spinal compression fracture [Recovered/Resolved]
  - Oedema peripheral [Unknown]
  - Diabetic neuropathy [Unknown]
  - Pain [Not Recovered/Not Resolved]
  - Hypertension [Unknown]
  - Toe amputation [Unknown]
  - Dyslipidaemia [Unknown]
  - Medical device pain [Unknown]
  - Joint dislocation [Unknown]
  - Joint dislocation [Unknown]
  - Laceration [Unknown]
  - Joint dislocation reduction [Unknown]
  - Toe amputation [Unknown]
  - Angiopathy [Unknown]
  - Constipation [Unknown]
  - Muscle spasms [Unknown]
